FAERS Safety Report 9620183 (Version 4)
Quarter: 2014Q1

REPORT INFORMATION
  Report Type: Spontaneous
  Country: US (occurrence: US)
  Receive Date: 20131014
  Receipt Date: 20140203
  Transmission Date: 20141002
  Serious: Yes (Hospitalization, Other)
  Sender: FDA-Public Use
  Company Number: US-GILEAD-2013-0080956

PATIENT
  Sex: Female

DRUGS (6)
  1. LETAIRIS [Suspect]
     Indication: PULMONARY ARTERIAL HYPERTENSION
     Dosage: 10 MG, QD
     Route: 048
     Dates: start: 20110310
  2. SILDENAFIL CITRATE [Concomitant]
  3. REMODULIN [Concomitant]
  4. TYVASO [Concomitant]
  5. REVATIO [Concomitant]
  6. COUMADIN                           /00627701/ [Concomitant]

REACTIONS (2)
  - Lung transplant [Unknown]
  - Unevaluable event [Unknown]
